FAERS Safety Report 10521499 (Version 1)
Quarter: 2014Q4

REPORT INFORMATION
  Report Type: Spontaneous
  Country: US (occurrence: None)
  Receive Date: 20141014
  Receipt Date: 20141014
  Transmission Date: 20150528
  Serious: No
  Sender: FDA-Public Use
  Company Number: None

PATIENT

DRUGS (2)
  1. BRIMONIDINE TARTRATE (BRIMONIDINE) [Suspect]
     Active Substance: BRIMONIDINE TARTRATE
     Dosage: DROPS, OPHTHALMIC, 0.2 %, BOTTLE, 15 ML?
     Route: 047
  2. BRIMONIDINE TARTRATE (BRIMONIDINE) [Suspect]
     Active Substance: BRIMONIDINE TARTRATE
     Dosage: DROPS, OPHTHALMIC, 0.15 %, BOTTLE, 10 ML
     Route: 047

REACTIONS (1)
  - Intercepted drug dispensing error [None]
